FAERS Safety Report 11147784 (Version 1)
Quarter: 2015Q2

REPORT INFORMATION
  Report Type: Spontaneous
  Country: US (occurrence: None)
  Receive Date: 20150528
  Receipt Date: 20150528
  Transmission Date: 20150821
  Serious: No
  Sender: FDA-Public Use
  Company Number: None

PATIENT
  Age: 55 Year
  Sex: Female

DRUGS (3)
  1. IBRANCE [Suspect]
     Active Substance: PALBOCICLIB
     Indication: BREAST CANCER
     Dosage: 100MG QD X 21 OFF 7 PO
     Route: 048
     Dates: start: 20150321
  2. LETROZOLE. [Concomitant]
     Active Substance: LETROZOLE
  3. ETODOLAC. [Concomitant]
     Active Substance: ETODOLAC

REACTIONS (2)
  - Coating in mouth [None]
  - Stomatitis [None]

NARRATIVE: CASE EVENT DATE: 201505
